FAERS Safety Report 20039278 (Version 1)
Quarter: 2021Q4

REPORT INFORMATION
  Report Type: Spontaneous
  Country: DE (occurrence: DE)
  Receive Date: 20211105
  Receipt Date: 20211105
  Transmission Date: 20220303
  Serious: Yes (Other)
  Sender: FDA-Public Use
  Company Number: DE-OTSUKA-2016_019401

PATIENT
  Sex: Male
  Weight: 70 kg

DRUGS (8)
  1. SAMSCA [Suspect]
     Active Substance: TOLVAPTAN
     Indication: Inappropriate antidiuretic hormone secretion
     Dosage: 7.5 MG, TID
     Route: 065
  2. SAMSCA [Suspect]
     Active Substance: TOLVAPTAN
     Dosage: UNK (INCREASING FROM 7.5 MG TO 30 MG)
     Route: 065
  3. SAMSCA [Suspect]
     Active Substance: TOLVAPTAN
     Dosage: 30 MG, UNK
     Route: 065
  4. SAMSCA [Suspect]
     Active Substance: TOLVAPTAN
     Dosage: UNK (SLOW GRADUAL REDUCTION STARTING FROM 30 MG)
     Route: 065
  5. SAMSCA [Suspect]
     Active Substance: TOLVAPTAN
     Dosage: 15 MG, QD
     Route: 065
  6. SAMSCA [Suspect]
     Active Substance: TOLVAPTAN
     Dosage: 7.5 MG, QD (SPLIT)
     Route: 065
  7. SAMSCA [Suspect]
     Active Substance: TOLVAPTAN
     Dosage: 7.5 MG, UNK (IN SMALL INTERVALS)
     Route: 065
  8. SAMSCA [Suspect]
     Active Substance: TOLVAPTAN
     Dosage: 7.5 MG, UNK (EVERY 10 DAYS)
     Route: 065

REACTIONS (6)
  - Polyneuropathy [Unknown]
  - Wrong technique in product usage process [Unknown]
  - Underdose [Unknown]
  - Inappropriate schedule of product administration [Unknown]
  - Off label use [Unknown]
  - Incorrect product administration duration [Unknown]
